FAERS Safety Report 7980306-X (Version None)
Quarter: 2011Q4

REPORT INFORMATION
  Report Type: 
  Country: None (occurrence: None)
  Receive Date: 20111214
  Receipt Date: 20111205
  Transmission Date: 20120403
  Serious: Yes (Hospitalization, Other)
  Sender: FDA-Public Use
  Company Number: PHHY2011NL107823

PATIENT
  Age: 52 Year
  Sex: Female

DRUGS (1)
  1. CLOMIPRAMINE HCL [Suspect]

REACTIONS (8)
  - CONGESTIVE CARDIOMYOPATHY [None]
  - ASTHENIA [None]
  - MAJOR DEPRESSION [None]
  - HYPOKINESIA [None]
  - FATIGUE [None]
  - DYSPNOEA [None]
  - CARDIAC OUTPUT DECREASED [None]
  - SUICIDE ATTEMPT [None]
